FAERS Safety Report 12499130 (Version 4)
Quarter: 2016Q3

REPORT INFORMATION
  Report Type: Report from Study
  Country: US (occurrence: US)
  Receive Date: 20160627
  Receipt Date: 20160714
  Transmission Date: 20161109
  Serious: Yes (Other)
  Sender: FDA-Public Use
  Company Number: US-AMGEN-USASP2016080029

PATIENT
  Age: 68 Year
  Sex: Female

DRUGS (1)
  1. ENBREL [Suspect]
     Active Substance: ETANERCEPT
     Indication: PSORIATIC ARTHROPATHY
     Dosage: UNK
     Route: 065

REACTIONS (12)
  - Joint range of motion decreased [Unknown]
  - Pain [Unknown]
  - Psoriasis [Unknown]
  - Musculoskeletal pain [Unknown]
  - Inflammation [Unknown]
  - Pain in extremity [Unknown]
  - General physical health deterioration [Unknown]
  - Activities of daily living impaired [Unknown]
  - Depression [Unknown]
  - Abasia [Unknown]
  - Arthralgia [Unknown]
  - Mobility decreased [Unknown]
